FAERS Safety Report 4947560-X (Version None)
Quarter: 2006Q1

REPORT INFORMATION
  Report Type: 
  Country: None (occurrence: None)
  Receive Date: 20060315
  Receipt Date: 20060301
  Transmission Date: 20060701
  Serious: Yes (Other)
  Sender: FDA-Public Use
  Company Number: 2006032570

PATIENT
  Age: 32 Year
  Sex: Female
  Weight: 63 kg

DRUGS (2)
  1. CELEBREX [Suspect]
     Indication: PAIN
     Dosage: 200 MG (200 MG, 1 IN 1 D)
  2. ACETAMINOPHEN [Concomitant]

REACTIONS (4)
  - CHOLESTASIS [None]
  - HAEMANGIOMA OF LIVER [None]
  - HEPATIC FIBROSIS [None]
  - HEPATIC NECROSIS [None]
